FAERS Safety Report 10738690 (Version 1)
Quarter: 2015Q1

REPORT INFORMATION
  Report Type: Spontaneous
  Country: US (occurrence: US)
  Receive Date: 20150126
  Receipt Date: 20150126
  Transmission Date: 20150721
  Serious: Yes (Death)
  Sender: FDA-Public Use
  Company Number: US-BAUSCH-BL-2015-001384

PATIENT
  Age: 60 Year
  Sex: Male

DRUGS (1)
  1. DILTIAZEM [Suspect]
     Active Substance: DILTIAZEM
     Indication: PRODUCT USED FOR UNKNOWN INDICATION
     Dosage: APPROXIMATELY 90 TABLETS

REACTIONS (6)
  - Completed suicide [Fatal]
  - Seizure [Unknown]
  - Cardiac arrest [Unknown]
  - Hypotension [Unknown]
  - Asthenia [Unknown]
  - Tremor [Unknown]
